FAERS Safety Report 4583648-3 (Version None)
Quarter: 2005Q1

REPORT INFORMATION
  Report Type: 
  Country: None (occurrence: None)
  Receive Date: 20050125
  Receipt Date: 20041007
  Transmission Date: 20050727
  Serious: No
  Sender: FDA-Public Use
  Company Number: USA041080615

PATIENT
  Age: 64 Year
  Sex: Female

DRUGS (3)
  1. FORTEO [Suspect]
     Indication: OSTEOPOROSIS
     Dates: start: 20040929
  2. CELEBREX [Concomitant]
  3. LIPITOR [Concomitant]

REACTIONS (4)
  - ABNORMAL DREAMS [None]
  - DISTURBANCE IN ATTENTION [None]
  - HEADACHE [None]
  - SLEEP DISORDER [None]
